FAERS Safety Report 25182641 (Version 1)
Quarter: 2025Q2

REPORT INFORMATION
  Report Type: Spontaneous
  Country: US (occurrence: US)
  Receive Date: 20250410
  Receipt Date: 20250410
  Transmission Date: 20250717
  Serious: Yes (Other)
  Sender: TEVA
  Company Number: US-TEVA-VS-3316488

PATIENT
  Age: 81 Year
  Sex: Female
  Weight: 63.5 kg

DRUGS (2)
  1. QVAR [Suspect]
     Active Substance: BECLOMETHASONE DIPROPIONATE
     Indication: Chronic obstructive pulmonary disease
     Dosage: 2 PUFFS BY MOUTH 2 TIMES PER DAY, INHALATION AEROSOL
     Route: 048
     Dates: start: 2022
  2. QVAR [Suspect]
     Active Substance: BECLOMETHASONE DIPROPIONATE
     Indication: Asthma

REACTIONS (5)
  - Oxygen saturation decreased [Recovered/Resolved]
  - Candida infection [Unknown]
  - Post-acute COVID-19 syndrome [Recovered/Resolved]
  - Off label use [Unknown]
  - COVID-19 [Recovered/Resolved]

NARRATIVE: CASE EVENT DATE: 20241230
